FAERS Safety Report 14212916 (Version 1)
Quarter: 2017Q4

REPORT INFORMATION
  Report Type: Other
  Country: CA (occurrence: CA)
  Receive Date: 20171122
  Receipt Date: 20171122
  Transmission Date: 20180321
  Serious: Yes (Other)
  Sender: FDA-Public Use
  Company Number: CA-APOTEX-2017AP021390

PATIENT
  Age: 76 Year
  Sex: Female

DRUGS (5)
  1. BUPIVACAINE HYDROCHLORIDE W/FENTANYL CITRATE [Concomitant]
     Indication: MAINTENANCE OF ANAESTHESIA
     Dosage: 15 MG, UNK
     Route: 065
  2. APO-FENTANYL MATRIX [Suspect]
     Active Substance: FENTANYL
     Indication: MAINTENANCE OF ANAESTHESIA
     Dosage: 10 ?G, UNK
     Route: 065
  3. MORPHINE [Suspect]
     Active Substance: MORPHINE
     Indication: ANAESTHETIC PREMEDICATION
     Dosage: 10 MG, UNK
     Route: 065
  4. APO-FENTANYL MATRIX [Suspect]
     Active Substance: FENTANYL
     Dosage: 150 ?G, UNK
     Route: 042
  5. FENTANYL. [Suspect]
     Active Substance: FENTANYL
     Indication: MAINTENANCE OF ANAESTHESIA
     Dosage: 150 MG, UNK
     Route: 042

REACTIONS (3)
  - Drug interaction [Recovered/Resolved]
  - Sinus bradycardia [Recovered/Resolved]
  - Sphincter of Oddi dysfunction [Recovered/Resolved]
